FAERS Safety Report 16873874 (Version 1)
Quarter: 2019Q4

REPORT INFORMATION
  Report Type: Spontaneous
  Country: SA (occurrence: SA)
  Receive Date: 20191001
  Receipt Date: 20191001
  Transmission Date: 20200122
  Serious: Yes (Hospitalization)
  Sender: FDA-Public Use
  Company Number: SA-ELI_LILLY_AND_COMPANY-SA201909013883

PATIENT
  Age: 69 Year
  Sex: Male

DRUGS (4)
  1. LEUCOVORIN [FOLINIC ACID] [Concomitant]
     Active Substance: LEUCOVORIN
     Indication: RECTAL ADENOCARCINOMA
     Dosage: UNK
  2. 5-FLUOROURACIL [FLUOROURACIL] [Concomitant]
     Active Substance: FLUOROURACIL
     Indication: RECTAL ADENOCARCINOMA
     Dosage: UNK
  3. IRINOTECAN [Concomitant]
     Active Substance: IRINOTECAN
     Indication: RECTAL ADENOCARCINOMA
     Dosage: UNK
  4. ERBITUX [Suspect]
     Active Substance: CETUXIMAB
     Indication: RECTAL ADENOCARCINOMA
     Dosage: UNK, UNKNOWN
     Route: 065

REACTIONS (1)
  - Organising pneumonia [Recovering/Resolving]
